FAERS Safety Report 22611341 (Version 1)
Quarter: 2023Q2

REPORT INFORMATION
  Report Type: Spontaneous
  Country: GB (occurrence: GB)
  Receive Date: 20230616
  Receipt Date: 20230616
  Transmission Date: 20230721
  Serious: Yes (Hospitalization)
  Sender: FDA-Public Use
  Company Number: None

PATIENT
  Sex: Female

DRUGS (7)
  1. NAPROXEN [Suspect]
     Active Substance: NAPROXEN
     Indication: Rib fracture
     Dosage: 500 MILLIGRAM, BID
     Route: 065
  2. CODEINE [Concomitant]
     Active Substance: CODEINE
     Dosage: 30MG-60MG QDS PRN
     Route: 065
  3. DOXYCYCLINE [Concomitant]
     Active Substance: DOXYCYCLINE
     Dosage: 200 MILLIGRAM STAT
     Route: 065
  4. DOXYCYCLINE [Concomitant]
     Active Substance: DOXYCYCLINE
     Dosage: 100 MILLIGRAM, QD; 19/5/23
     Route: 065
  5. OMEPRAZOLE [Concomitant]
     Active Substance: OMEPRAZOLE
     Dosage: 20 MILLIGRAM, QD (OD)
     Route: 065
  6. OMEPRAZOLE [Concomitant]
     Active Substance: OMEPRAZOLE
     Dosage: 40 MILLIGRAM, QD
     Route: 065
  7. ALBUTEROL [Concomitant]
     Active Substance: ALBUTEROL
     Dosage: 100MICROGRAM/DOSE INHALER TWO PUFFS PRN
     Route: 065

REACTIONS (1)
  - Enteritis [Recovered/Resolved]
